FAERS Safety Report 7124290-X (Version None)
Quarter: 2010Q4

REPORT INFORMATION
  Report Type: 
  Country: None (occurrence: None)
  Receive Date: 20101126
  Receipt Date: 20101116
  Transmission Date: 20110411
  Serious: Yes (Hospitalization, Other)
  Sender: FDA-Public Use
  Company Number: PHHY2010US61397

PATIENT
  Sex: Female

DRUGS (7)
  1. RECLAST [Suspect]
     Indication: OSTEOPOROSIS
     Dosage: 5 MG
     Dates: start: 20090715
  2. RECLAST [Suspect]
     Dosage: 5 MG
     Dates: start: 20100826
  3. NORVASC [Concomitant]
     Dosage: 5 MG, UNK
  4. PROTONIX [Concomitant]
     Dosage: 40 MG, UNK
  5. LIPITOR [Concomitant]
     Dosage: 10 MG, UNK
  6. FLEXERIL [Concomitant]
     Indication: MUSCLE SPASMS
     Dosage: 10 MG
     Route: 048
  7. ASP [Concomitant]

REACTIONS (8)
  - ANAPHYLACTIC SHOCK [None]
  - BACK PAIN [None]
  - FALL [None]
  - HYPERSENSITIVITY [None]
  - HYPOAESTHESIA ORAL [None]
  - LIP DRY [None]
  - OROPHARYNGEAL PAIN [None]
  - THROAT TIGHTNESS [None]
